FAERS Safety Report 4598964-9 (Version None)
Quarter: 2005Q1

REPORT INFORMATION
  Report Type: 
  Country: None (occurrence: None)
  Receive Date: 20050302
  Receipt Date: 20050204
  Transmission Date: 20050727
  Serious: Yes (Other)
  Sender: FDA-Public Use
  Company Number: PHEH2005US01658

PATIENT
  Age: 91 Year
  Sex: Male

DRUGS (2)
  1. VISUDYNE [Suspect]
     Indication: MACULAR DEGENERATION
     Dates: start: 20040101, end: 20040101
  2. WARFARIN [Concomitant]

REACTIONS (1)
  - SKIN CANCER [None]
